FAERS Safety Report 23773838 (Version 1)
Quarter: 2024Q2

REPORT INFORMATION
  Report Type: Spontaneous
  Country: FR (occurrence: FR)
  Receive Date: 20240423
  Receipt Date: 20240423
  Transmission Date: 20240716
  Serious: Yes (Other)
  Sender: FDA-Public Use
  Company Number: None

PATIENT
  Age: 42 Year
  Sex: Male

DRUGS (2)
  1. CLOZAPINE [Suspect]
     Active Substance: CLOZAPINE
     Indication: Mental disorder
     Dosage: 100MG 2-2-2
     Route: 048
  2. AUGMENTIN [Suspect]
     Active Substance: AMOXICILLIN\CLAVULANATE POTASSIUM
     Indication: Tooth infection
     Dosage: 1G 1-1-1
     Route: 048
     Dates: start: 20231109, end: 20231114

REACTIONS (2)
  - Neutropenia [Unknown]
  - Overdose [Unknown]

NARRATIVE: CASE EVENT DATE: 20231118
